FAERS Safety Report 6296567-1 (Version None)
Quarter: 2009Q3

REPORT INFORMATION
  Report Type: 
  Country: None (occurrence: None)
  Receive Date: 20090804
  Receipt Date: 20090723
  Transmission Date: 20100115
  Serious: Yes (Hospitalization, Other)
  Sender: FDA-Public Use
  Company Number: JP-PFIZER INC-2008085032

PATIENT
  Age: 74 Year

DRUGS (1)
  1. ZOLOFT [Suspect]
     Indication: APATHY
     Dosage: UNK
     Route: 048
     Dates: start: 20080810, end: 20081005

REACTIONS (2)
  - INAPPROPRIATE ANTIDIURETIC HORMONE SECRETION [None]
  - RECTAL DISCHARGE [None]
